FAERS Safety Report 6174475-4 (Version None)
Quarter: 2009Q2

REPORT INFORMATION
  Report Type: 
  Country: None (occurrence: None)
  Receive Date: 20090430
  Receipt Date: 20080619
  Transmission Date: 20091009
  Serious: No
  Sender: FDA-Public Use
  Company Number: US-ASTRAZENECA-2008UW12356

PATIENT
  Age: 58 Year
  Sex: Female
  Weight: 40.8 kg

DRUGS (2)
  1. NEXIUM [Suspect]
     Route: 048
  2. MOTRIN [Concomitant]

REACTIONS (4)
  - MALAISE [None]
  - NAUSEA [None]
  - NERVOUSNESS [None]
  - VOMITING [None]
